FAERS Safety Report 20013023 (Version 1)
Quarter: 2021Q4

REPORT INFORMATION
  Report Type: Spontaneous
  Country: CN (occurrence: CN)
  Receive Date: 20211029
  Receipt Date: 20211029
  Transmission Date: 20220303
  Serious: Yes (Life-Threatening, Disabling)
  Sender: FDA-Public Use
  Company Number: CN-BOEHRINGERINGELHEIM-2021-BI-133625

PATIENT
  Age: 75 Year
  Sex: Male
  Weight: 63 kg

DRUGS (1)
  1. ALTEPLASE [Suspect]
     Active Substance: ALTEPLASE
     Indication: Cerebral infarction
     Route: 042
     Dates: start: 20211011, end: 20211011

REACTIONS (3)
  - Coma [Recovered/Resolved with Sequelae]
  - Cerebral haemorrhage [Recovered/Resolved with Sequelae]
  - Tachypnoea [Recovered/Resolved with Sequelae]

NARRATIVE: CASE EVENT DATE: 20211011
